FAERS Safety Report 6328530-6 (Version None)
Quarter: 2009Q3

REPORT INFORMATION
  Report Type: 
  Country: None (occurrence: None)
  Receive Date: 20090826
  Receipt Date: 20090821
  Transmission Date: 20100115
  Serious: Yes (Hospitalization)
  Sender: FDA-Public Use
  Company Number: US-BIOGENIDEC-2009BI026505

PATIENT
  Age: 53 Year
  Sex: Female

DRUGS (7)
  1. TYSABRI [Suspect]
     Indication: MULTIPLE SCLEROSIS
     Route: 042
     Dates: start: 20070607
  2. CITALOPRAM [Concomitant]
     Indication: DEPRESSION
     Dates: start: 20090804
  3. TRAZODONE HCL [Concomitant]
     Indication: INSOMNIA
     Dates: start: 20071109
  4. GABAPENTIN [Concomitant]
     Indication: NEUROPATHY PERIPHERAL
     Dates: start: 20080715
  5. IBUPROFEN [Concomitant]
     Indication: PAIN
  6. LISINOPRIL [Concomitant]
  7. HYDROCODONE [Concomitant]
     Indication: PAIN

REACTIONS (2)
  - CHOLELITHIASIS [None]
  - PANCREATITIS [None]
